FAERS Safety Report 5246047-7 (Version None)
Quarter: 2007Q1

REPORT INFORMATION
  Report Type: 
  Country: None (occurrence: None)
  Receive Date: 20061201
  Receipt Date: 20060724
  Transmission Date: 20070707
  Serious: No
  Sender: FDA-Public Use
  Company Number: 2006PV018152

PATIENT
  Age: 52 Year
  Sex: Female
  Weight: 89.3586 kg

DRUGS (8)
  1. BYETTA [Suspect]
     Dosage: 10 MCG;UNK;SC, 5 MCG;BID;SC, 5 MCG;BID;SC, 10 MCG;BID;SC
     Route: 058
     Dates: start: 20060701, end: 20060101
  2. BYETTA [Suspect]
     Dosage: 10 MCG;UNK;SC, 5 MCG;BID;SC, 5 MCG;BID;SC, 10 MCG;BID;SC
     Route: 058
     Dates: start: 20060613, end: 20060701
  3. BYETTA [Suspect]
     Dosage: 10 MCG;UNK;SC, 5 MCG;BID;SC, 5 MCG;BID;SC, 10 MCG;BID;SC
     Route: 058
     Dates: start: 20060701, end: 20060801
  4. BYETTA [Suspect]
     Dosage: 10 MCG;UNK;SC, 5 MCG;BID;SC, 5 MCG;BID;SC, 10 MCG;BID;SC
     Route: 058
     Dates: start: 20060801
  5. GLYBURIDE [Concomitant]
  6. METFORMIN HCL [Concomitant]
  7. AVANDIA [Concomitant]
  8. GLUCOPHAGE [Concomitant]

REACTIONS (7)
  - BLOOD GLUCOSE DECREASED [None]
  - ENERGY INCREASED [None]
  - INJECTION SITE BRUISING [None]
  - INJECTION SITE PAIN [None]
  - NAUSEA [None]
  - VOMITING [None]
  - WEIGHT DECREASED [None]
